FAERS Safety Report 6160380-6 (Version None)
Quarter: 2009Q2

REPORT INFORMATION
  Report Type: 
  Country: None (occurrence: None)
  Receive Date: 20090420
  Receipt Date: 20090413
  Transmission Date: 20091009
  Serious: Yes (Hospitalization)
  Sender: FDA-Public Use
  Company Number: US-ELI_LILLY_AND_COMPANY-US200904002554

PATIENT
  Sex: Female

DRUGS (2)
  1. HUMALOG [Suspect]
  2. INSULATARD NPH HUMAN [Concomitant]

REACTIONS (1)
  - LOSS OF CONSCIOUSNESS [None]
